FAERS Safety Report 7963133-9 (Version None)
Quarter: 2011Q4

REPORT INFORMATION
  Report Type: 
  Country: None (occurrence: None)
  Receive Date: 20111207
  Receipt Date: 20111122
  Transmission Date: 20120403
  Serious: Yes (Other)
  Sender: FDA-Public Use
  Company Number: US-WATSON-2011-20577

PATIENT
  Age: 23 Year
  Sex: Female

DRUGS (1)
  1. FLUOXETINE HCL [Suspect]
     Indication: BULIMIA NERVOSA
     Dosage: 20MG/DAY X7 DAYS, THEN 40MG/DAY
     Route: 048

REACTIONS (1)
  - YAWNING [None]
